FAERS Safety Report 5356319-3 (Version None)
Quarter: 2007Q2

REPORT INFORMATION
  Report Type: 
  Country: None (occurrence: None)
  Receive Date: 20070613
  Receipt Date: 20070601
  Transmission Date: 20071010
  Serious: Yes (Other)
  Sender: FDA-Public Use
  Company Number: SE-PFIZER INC-2007045474

PATIENT
  Sex: Female

DRUGS (1)
  1. LYRICA [Suspect]
     Indication: NEURALGIA
     Route: 048

REACTIONS (6)
  - CLONUS [None]
  - HEADACHE [None]
  - NAUSEA [None]
  - PAIN [None]
  - PARAESTHESIA [None]
  - TREMOR [None]
